FAERS Safety Report 19207137 (Version 4)
Quarter: 2021Q3

REPORT INFORMATION
  Report Type: Other
  Country: US (occurrence: US)
  Receive Date: 20210501
  Receipt Date: 20210726
  Transmission Date: 20211014
  Serious: Yes (Other)
  Sender: FDA-Public Use
  Company Number: US-ROCHE-2819498

PATIENT
  Age: 55 Year
  Sex: Female

DRUGS (1)
  1. CELLCEPT [Suspect]
     Active Substance: MYCOPHENOLATE MOFETIL\MYCOPHENOLATE MOFETIL HYDROCHLORIDE
     Indication: HEART TRANSPLANT
     Dosage: 1 BID
     Route: 065

REACTIONS (6)
  - Fall [Unknown]
  - Muscle strain [Unknown]
  - Off label use [Unknown]
  - Ankle fracture [Unknown]
  - Basal cell carcinoma [Unknown]
  - Contusion [Unknown]

NARRATIVE: CASE EVENT DATE: 20210428
